FAERS Safety Report 7285333-6 (Version None)
Quarter: 2011Q1

REPORT INFORMATION
  Report Type: 
  Country: None (occurrence: None)
  Receive Date: 20110201
  Receipt Date: 20110124
  Transmission Date: 20110831
  Serious: Yes (Hospitalization, Disabling, Other)
  Sender: FDA-Public Use
  Company Number: 2010SP050517

PATIENT
  Sex: Female
  Weight: 47.6277 kg

DRUGS (4)
  1. COUMADIN [Suspect]
     Indication: THROMBOSIS
  2. COLAZAL [Concomitant]
  3. NUVARING [Suspect]
     Indication: CONTRACEPTION
     Dosage: DF;QM;
  4. PREDNISONE [Concomitant]

REACTIONS (20)
  - ANAEMIA [None]
  - RENAL VEIN THROMBOSIS [None]
  - DEEP VEIN THROMBOSIS [None]
  - HYDRONEPHROSIS [None]
  - HAEMORRHAGE [None]
  - ANXIETY [None]
  - INSOMNIA [None]
  - HAEMORRHOIDS [None]
  - URINARY TRACT INFECTION [None]
  - IMPAIRED WORK ABILITY [None]
  - HYPERCOAGULATION [None]
  - HYPOCOAGULABLE STATE [None]
  - NEPHROLITHIASIS [None]
  - LOWER GASTROINTESTINAL HAEMORRHAGE [None]
  - VULVOVAGINAL CANDIDIASIS [None]
  - DRUG INTOLERANCE [None]
  - COLITIS ULCERATIVE [None]
  - ALOPECIA [None]
  - PSEUDOPOLYPOSIS [None]
  - INCREASED TENDENCY TO BRUISE [None]
